FAERS Safety Report 6149993-5 (Version None)
Quarter: 2009Q2

REPORT INFORMATION
  Report Type: 
  Country: None (occurrence: None)
  Receive Date: 20090409
  Receipt Date: 20090402
  Transmission Date: 20091009
  Serious: Yes (Other)
  Sender: FDA-Public Use
  Company Number: B0561583A

PATIENT
  Sex: Female
  Weight: 16.5 kg

DRUGS (1)
  1. AUGMENTIN '125' [Suspect]
     Indication: NASOPHARYNGITIS
     Dosage: 275MG THREE TIMES PER DAY
     Route: 048
     Dates: start: 20090212, end: 20090218

REACTIONS (7)
  - ANAL HAEMORRHAGE [None]
  - ANAL PRURITUS [None]
  - DIARRHOEA [None]
  - ERYTHEMA [None]
  - FAECES HARD [None]
  - HAEMATOCHEZIA [None]
  - PROCTALGIA [None]
